FAERS Safety Report 10240443 (Version 1)
Quarter: 2014Q2

REPORT INFORMATION
  Report Type: Spontaneous
  Country: US (occurrence: US)
  Receive Date: 20140617
  Receipt Date: 20140617
  Transmission Date: 20141212
  Serious: No
  Sender: FDA-Public Use
  Company Number: US-009507513-1405USA006085

PATIENT
  Age: 41 Year
  Sex: Female

DRUGS (2)
  1. DULERA [Suspect]
     Indication: ASTHMA
     Dosage: 200 MCG/5 MCG 12 PUFFS TWICE PER DAY
     Route: 055
     Dates: start: 201404
  2. PRILOSEC [Concomitant]
     Dosage: UNK
     Route: 048

REACTIONS (2)
  - Menstrual disorder [Not Recovered/Not Resolved]
  - Haemorrhage [Not Recovered/Not Resolved]
